FAERS Safety Report 9056858 (Version 1)
Quarter: 2013Q1

REPORT INFORMATION
  Report Type: Report from Study
  Country: JP (occurrence: JP)
  Receive Date: 20130201
  Receipt Date: 20130201
  Transmission Date: 20140127
  Serious: Yes (Other)
  Sender: FDA-Public Use
  Company Number: JP-GLAXOSMITHKLINE-B0860727A

PATIENT
  Age: 68 None
  Sex: Female
  Weight: 50 kg

DRUGS (6)
  1. TYKERB [Suspect]
     Indication: BREAST CANCER
     Route: 048
     Dates: start: 20110322, end: 20110412
  2. TYKERB [Suspect]
     Indication: BREAST CANCER
     Route: 048
     Dates: start: 20110628, end: 20110711
  3. ZYPREXA [Concomitant]
     Indication: SCHIZOPHRENIA
     Route: 048
  4. AMLODIN [Concomitant]
     Indication: HYPERTENSION
     Route: 048
  5. BIOFERMIN [Concomitant]
     Indication: PROPHYLAXIS AGAINST DIARRHOEA
     Route: 048
     Dates: start: 20110628, end: 20110710
  6. ISODINE [Concomitant]
     Indication: PROPHYLAXIS
     Route: 061
     Dates: start: 20110412

REACTIONS (1)
  - Renal impairment [Recovered/Resolved]
